FAERS Safety Report 4330472-2 (Version None)
Quarter: 2004Q1

REPORT INFORMATION
  Report Type: 
  Country: None (occurrence: None)
  Receive Date: 20040329
  Receipt Date: 20040317
  Transmission Date: 20041129
  Serious: Yes (Other)
  Sender: FDA-Public Use
  Company Number: K200400401

PATIENT
  Age: 69 Year
  Sex: Female

DRUGS (10)
  1. ALTACE [Suspect]
     Indication: CARDIAC FAILURE
     Dosage: SEE IMAGE
     Route: 048
     Dates: start: 20031203, end: 20040107
  2. ALTACE [Suspect]
     Indication: CARDIAC FAILURE
     Dosage: SEE IMAGE
     Route: 048
     Dates: start: 20040108, end: 20040121
  3. ALTACE [Suspect]
     Indication: CARDIAC FAILURE
     Dosage: SEE IMAGE
     Route: 048
     Dates: start: 20040123
  4. ZOCOR [Concomitant]
  5. DIGOXIN [Concomitant]
  6. FUROSEMIDE [Concomitant]
  7. ACETAMINOPHEN [Concomitant]
  8. CLOPIDOGREL (CLOPIDOGREL) [Concomitant]
  9. RANITIDINE [Concomitant]
  10. GASTROCOTE (ALGINIC ACID, ALUMINIUM HYDROXIDE GEL, DRIED, MAGNESIUM TR [Concomitant]

REACTIONS (3)
  - CARDIAC FAILURE [None]
  - CHEST PAIN [None]
  - COUGH [None]
